FAERS Safety Report 12561768 (Version 12)
Quarter: 2018Q1

REPORT INFORMATION
  Report Type: Report from Study
  Country: US (occurrence: US)
  Receive Date: 20160715
  Receipt Date: 20180112
  Transmission Date: 20180508
  Serious: Yes (Death, Life-Threatening, Hospitalization, Other)
  Sender: FDA-Public Use
  Company Number: PHEH2016US017515

PATIENT
  Sex: Male

DRUGS (3)
  1. ENTRESTO [Suspect]
     Active Substance: SACUBITRIL\VALSARTAN
     Indication: LEFT VENTRICULAR FAILURE
     Dosage: 1 DF (97 MG SACUBITRIL, 103 MG VALSARTAN), BID
     Route: 065
     Dates: start: 20160301
  2. ENTRESTO [Suspect]
     Active Substance: SACUBITRIL\VALSARTAN
     Indication: CARDIAC FAILURE
  3. ENTRESTO [Suspect]
     Active Substance: SACUBITRIL\VALSARTAN
     Indication: CARDIAC FAILURE CONGESTIVE
     Dosage: 200 MG, BID
     Route: 048
     Dates: start: 20160607

REACTIONS (13)
  - Lymphoma [Fatal]
  - Fall [Unknown]
  - Hypotension [Unknown]
  - Loss of consciousness [Unknown]
  - Lung neoplasm malignant [Fatal]
  - Hepatic cancer stage IV [Fatal]
  - Bone cancer [Fatal]
  - Weight decreased [Fatal]
  - Malaise [Fatal]
  - Dizziness [Unknown]
  - Pain [Unknown]
  - Decreased appetite [Fatal]
  - Arthralgia [Recovering/Resolving]

NARRATIVE: CASE EVENT DATE: 20160301
